FAERS Safety Report 15225479 (Version 6)
Quarter: 2019Q2

REPORT INFORMATION
  Report Type: Spontaneous
  Country: DE (occurrence: DE)
  Receive Date: 20180801
  Receipt Date: 20190618
  Transmission Date: 20190711
  Serious: Yes (Hospitalization)
  Sender: FDA-Public Use
  Company Number: DE-HIKMA PHARMACEUTICALS USA INC.-DE-H14001-18-06191

PATIENT
  Age: 62 Year
  Sex: Male
  Weight: 76 kg

DRUGS (23)
  1. JANUMET [Concomitant]
     Active Substance: METFORMIN HYDROCHLORIDE\SITAGLIPTIN PHOSPHATE
     Indication: TYPE 2 DIABETES MELLITUS
     Dosage: 50/100MG
     Route: 048
     Dates: start: 2010
  2. CISPLATIN. [Suspect]
     Active Substance: CISPLATIN
     Indication: SQUAMOUS CELL CARCINOMA
     Route: 041
     Dates: start: 20180522
  3. MORPHIN [Concomitant]
     Active Substance: MORPHINE
     Indication: PAIN
     Route: 058
     Dates: start: 20180702
  4. MSB0010718C;PLACEBO [Suspect]
     Active Substance: AVELUMAB
     Indication: SQUAMOUS CELL CARCINOMA
     Route: 042
     Dates: start: 20180517
  5. FORXIGA [Concomitant]
     Active Substance: DAPAGLIFLOZIN
     Indication: TYPE 2 DIABETES MELLITUS
     Route: 048
     Dates: start: 2014
  6. METAMIZOL [Concomitant]
     Active Substance: METAMIZOLE SODIUM
     Indication: PAIN
     Route: 048
     Dates: start: 20180702
  7. FENTANIL [Concomitant]
     Active Substance: FENTANYL
     Indication: PAIN
     Dosage: 37.5 MICROGRAM/H
     Route: 062
     Dates: start: 20180709
  8. IBUPROFEN. [Concomitant]
     Active Substance: IBUPROFEN
     Indication: PAIN
     Dosage: 16MG/12.5MG
     Route: 048
     Dates: start: 201705, end: 20180611
  9. TRAMAL [Concomitant]
     Active Substance: TRAMADOL
     Indication: TYPE 2 DIABETES MELLITUS
  10. CANDESARTAN HCL [Concomitant]
     Indication: HYPERTENSION
     Dosage: 16MG/12.5MG
     Route: 048
     Dates: start: 2007
  11. NEXIUM [Concomitant]
     Active Substance: ESOMEPRAZOLE MAGNESIUM
     Indication: PROPHYLAXIS
     Dosage: 16MG/12.5MG
     Route: 048
     Dates: start: 2014
  12. IBUPROFEN. [Concomitant]
     Active Substance: IBUPROFEN
     Dosage: 16MG/12.5MG
     Route: 048
     Dates: start: 20180611
  13. ATORVASTATIN [Concomitant]
     Active Substance: ATORVASTATIN
     Indication: HYPERLIPIDAEMIA
     Route: 048
     Dates: start: 2007
  14. AMPHOTERICIN B. [Concomitant]
     Active Substance: AMPHOTERICIN B
     Indication: CANDIDA INFECTION
     Route: 048
     Dates: start: 20180605
  15. AMPHOTERICIN B. [Concomitant]
     Active Substance: AMPHOTERICIN B
     Indication: CANDIDA INFECTION
  16. MCP [Concomitant]
     Active Substance: METOCLOPRAMIDE HYDROCHLORIDE
     Indication: NAUSEA
     Dosage: 16MG/12.5MG
     Route: 048
     Dates: start: 20180615, end: 20180619
  17. AMPHOTERICIN B. [Concomitant]
     Active Substance: AMPHOTERICIN B
     Indication: FUNGAL INFECTION
  18. MSB0010718C;PLACEBO [Suspect]
     Active Substance: AVELUMAB
     Route: 042
     Dates: start: 20180626
  19. ATACAND PLUS [Concomitant]
     Active Substance: CANDESARTAN CILEXETIL\HYDROCHLOROTHIAZIDE
     Indication: HYPERTENSION
     Dosage: 16MG/12.5MG
     Route: 048
     Dates: start: 2007, end: 20180703
  20. INSULIN [Concomitant]
     Active Substance: INSULIN NOS
     Indication: HYPERGLYCAEMIA
     Dosage: 16MG/12.5MG
     Route: 058
     Dates: start: 20180614, end: 20180614
  21. TRAMAL [Concomitant]
     Active Substance: TRAMADOL
     Indication: PRODUCT USED FOR UNKNOWN INDICATION
     Dosage: 16MG/12.5MG
     Route: 048
     Dates: start: 20180619
  22. MAGNESIUM VERLA [Concomitant]
     Active Substance: MAGNESIUM
     Indication: HYPOMAGNESAEMIA
     Dosage: 16MG/12.5MG
     Route: 048
     Dates: start: 20180611, end: 20180615
  23. INSULIN [Concomitant]
     Active Substance: INSULIN NOS
     Indication: TYPE 2 DIABETES MELLITUS

REACTIONS (4)
  - Dysphagia [Recovered/Resolved]
  - Decreased appetite [Recovered/Resolved]
  - Odynophagia [Recovered/Resolved]
  - Condition aggravated [Recovered/Resolved]

NARRATIVE: CASE EVENT DATE: 20180707
